FAERS Safety Report 19506402 (Version 2)
Quarter: 2021Q4

REPORT INFORMATION
  Report Type: Spontaneous
  Country: US (occurrence: US)
  Receive Date: 20210708
  Receipt Date: 20211004
  Transmission Date: 20220304
  Serious: No
  Sender: FDA-Public Use
  Company Number: US-MYLANLABS-2021M1040127

PATIENT

DRUGS (1)
  1. EPINEPHRINE [Suspect]
     Active Substance: EPINEPHRINE
     Indication: Product used for unknown indication
     Dosage: UNK
     Route: 058
     Dates: start: 202106

REACTIONS (3)
  - Liquid product physical issue [None]
  - Product quality issue [None]
  - Product colour issue [None]

NARRATIVE: CASE EVENT DATE: 20210626
